FAERS Safety Report 10487602 (Version 1)
Quarter: 2014Q4

REPORT INFORMATION
  Report Type: Spontaneous
  Country: FR (occurrence: FR)
  Receive Date: 20141001
  Receipt Date: 20141001
  Transmission Date: 20150528
  Serious: Yes (Hospitalization)
  Sender: FDA-Public Use
  Company Number: FR-ASTRAZENECA-2014SE72531

PATIENT
  Age: 66 Year
  Sex: Male

DRUGS (11)
  1. FENOFIBRATE. [Concomitant]
     Active Substance: FENOFIBRATE
  2. SYMBICORT [Concomitant]
     Active Substance: BUDESONIDE\FORMOTEROL FUMARATE DIHYDRATE
  3. DOLIPRANE [Concomitant]
     Active Substance: ACETAMINOPHEN
  4. INEXIUM [Suspect]
     Active Substance: ESOMEPRAZOLE
     Indication: GASTRIC ULCER
     Route: 048
     Dates: start: 20140505, end: 20140828
  5. EXFORGE [Concomitant]
     Active Substance: AMLODIPINE BESYLATE\VALSARTAN
  6. CALCIDOSE [Concomitant]
     Active Substance: CALCIUM CARBONATE
  7. THIOCOLCHICOSIDE [Concomitant]
     Active Substance: THIOCOLCHICOSIDE
  8. MAGNE B6 [Concomitant]
     Active Substance: MAGNESIUM\PYRIDOXINE
  9. ALPRAZOLAM. [Concomitant]
     Active Substance: ALPRAZOLAM
  10. ZOLPIDEM [Concomitant]
     Active Substance: ZOLPIDEM\ZOLPIDEM TARTRATE
  11. SPIRIVA [Concomitant]
     Active Substance: TIOTROPIUM BROMIDE MONOHYDRATE

REACTIONS (4)
  - Muscle spasms [Recovered/Resolved]
  - Myalgia [Recovered/Resolved]
  - Hypocalcaemia [Recovered/Resolved]
  - Hypomagnesaemia [Recovering/Resolving]
